FAERS Safety Report 6045776-5 (Version None)
Quarter: 2009Q1

REPORT INFORMATION
  Report Type: 
  Country: None (occurrence: None)
  Receive Date: 20090121
  Receipt Date: 20090115
  Transmission Date: 20090719
  Serious: Yes (Life-Threatening)
  Sender: FDA-Public Use
  Company Number: JP-ASTRAZENECA-2008AP08970

PATIENT
  Age: 48 Year
  Sex: Female
  Weight: 61 kg

DRUGS (10)
  1. NOLVADEX [Suspect]
     Indication: BREAST CANCER
     Route: 048
     Dates: start: 20050601, end: 20061027
  2. FLUOROURACIL [Suspect]
     Indication: BREAST CANCER
     Route: 041
     Dates: start: 20050224, end: 20050509
  3. EPIRUBICIN [Suspect]
     Indication: BREAST CANCER
     Route: 041
     Dates: start: 20050224, end: 20050509
  4. ENDOXAN [Suspect]
     Indication: BREAST CANCER
     Route: 041
     Dates: start: 20050224, end: 20050509
  5. TAXOL [Suspect]
     Indication: BREAST CANCER
     Dosage: ADMINISTERED ONCE IN A WEEK FOR THREE WEEKS THEN STOPPED FOR ONE WEEK.
     Route: 041
     Dates: start: 20041021, end: 20050127
  6. ZANTAC [Concomitant]
     Indication: PROPHYLAXIS AGAINST GASTROINTESTINAL ULCER
     Dosage: ADMINISTERED ONCE IN A WEEK FOR THREE WEEKS THEN STOPPED FOR ONE WEEK.
     Route: 041
     Dates: start: 20041021, end: 20050127
  7. CHLOR-TRIMETON [Concomitant]
     Indication: ALLERGY PROPHYLAXIS
     Dosage: ADMINISTERED ONCE IN A WEEK FOR THREE WEEKS THEN STOPPED FOR ONE WEEK.
     Route: 041
     Dates: start: 20041021, end: 20050127
  8. ZOFRAN [Concomitant]
     Indication: PROPHYLAXIS OF NAUSEA AND VOMITING
     Dosage: ADMINISTERED ONCE IN A WEEK FOR THREE WEEKS THEN STOPPED FOR ONE WEEK.
     Route: 041
     Dates: start: 20041021, end: 20050127
  9. ZOFRAN [Concomitant]
     Route: 041
     Dates: start: 20050224, end: 20050509
  10. DECADRON [Concomitant]
     Indication: PROPHYLAXIS OF NAUSEA AND VOMITING
     Route: 041
     Dates: start: 20050224, end: 20050509

REACTIONS (1)
  - ACUTE MYELOID LEUKAEMIA [None]
